FAERS Safety Report 11468894 (Version 1)
Quarter: 2015Q3

REPORT INFORMATION
  Report Type: Spontaneous
  Country: FR (occurrence: FR)
  Receive Date: 20150908
  Receipt Date: 20150908
  Transmission Date: 20151125
  Serious: Yes (Hospitalization)
  Sender: FDA-Public Use
  Company Number: FR-ELI_LILLY_AND_COMPANY-FR201508008506

PATIENT
  Age: 69 Year
  Sex: Female

DRUGS (1)
  1. ZYPREXA [Suspect]
     Active Substance: OLANZAPINE
     Indication: DELUSION
     Dosage: 1 DF, UNKNOWN

REACTIONS (3)
  - Contraindicated drug administered [Unknown]
  - Angle closure glaucoma [Unknown]
  - Optic atrophy [Unknown]
